FAERS Safety Report 4896350-5 (Version None)
Quarter: 2006Q1

REPORT INFORMATION
  Report Type: 
  Country: None (occurrence: None)
  Receive Date: 20060131
  Receipt Date: 20060112
  Transmission Date: 20060701
  Serious: Yes (Hospitalization)
  Sender: FDA-Public Use
  Company Number: PHEH2006US00905

PATIENT
  Age: 35 Year
  Sex: Female

DRUGS (10)
  1. GLEEVEC [Suspect]
     Indication: GASTROINTESTINAL STROMAL TUMOUR
     Dosage: 400 MG, QD
     Route: 048
     Dates: start: 20051222, end: 20051227
  2. ATIVAN [Concomitant]
     Dosage: 1 MG, Q8H
     Route: 048
  3. EFFEXOR /USA/ [Concomitant]
     Dosage: 300 MG, UNK
     Route: 048
  4. KLONOPIN [Concomitant]
     Dosage: 4 MG, QD
     Route: 048
  5. REGLAN                                  /USA/ [Concomitant]
     Dosage: 8 MG, Q8H
     Route: 048
  6. DILAUDID [Suspect]
     Indication: BREAKTHROUGH PAIN
     Route: 048
     Dates: start: 20060101
  7. ZANTAC [Concomitant]
     Dosage: 150 MG, UNK
     Route: 048
  8. ADDERALL 10 [Concomitant]
     Dosage: 75 MG, QD
     Route: 048
     Dates: end: 20051201
  9. PERCOCET [Concomitant]
     Route: 048
  10. ALBUTEROL SULFATE [Concomitant]

REACTIONS (13)
  - ASTHENIA [None]
  - BACK PAIN [None]
  - BLOOD CREATINE PHOSPHOKINASE INCREASED [None]
  - CSF IMMUNOGLOBULIN INCREASED [None]
  - CSF PROTEIN INCREASED [None]
  - DIFFICULTY IN WALKING [None]
  - HYPERREFLEXIA [None]
  - INTRA-UTERINE CONTRACEPTIVE DEVICE INSERTION [None]
  - NEUROLOGICAL SYMPTOM [None]
  - PAIN [None]
  - TREMOR [None]
  - TRISMUS [None]
  - VAGINAL HAEMORRHAGE [None]
